FAERS Safety Report 4738574-3 (Version None)
Quarter: 2005Q3

REPORT INFORMATION
  Report Type: 
  Country: None (occurrence: None)
  Receive Date: 20050808
  Receipt Date: 20050808
  Transmission Date: 20060218
  Serious: Yes (Death, Hospitalization)
  Sender: FDA-Public Use
  Company Number: None

PATIENT
  Sex: Female
  Weight: 69.8 kg

DRUGS (5)
  1. CYTARABINE [Suspect]
     Indication: ACUTE MYELOID LEUKAEMIA
     Dosage: SEE IMAGE
     Route: 042
     Dates: start: 20050719, end: 20050725
  2. DAUNORUBICIN HCL [Suspect]
     Dosage: SEE IMAGE
     Route: 042
     Dates: start: 20050719, end: 20050725
  3. CYTARABINE [Suspect]
     Dosage: SEE IMAGE
     Route: 042
     Dates: start: 20050719, end: 20050725
  4. DAUNORUBICIN HCL [Suspect]
     Dosage: SEE IMAGE
     Route: 042
     Dates: start: 20050719, end: 20050705
  5. CYTARABINE [Suspect]
     Dosage: SEE IMAGE
     Route: 042
     Dates: start: 20050719, end: 20050725

REACTIONS (8)
  - ANTIBODY TEST POSITIVE [None]
  - CENTRAL NERVOUS SYSTEM INFECTION [None]
  - CEREBRAL HAEMORRHAGE [None]
  - FEBRILE NEUTROPENIA [None]
  - GASTROINTESTINAL HAEMORRHAGE [None]
  - HYPERBILIRUBINAEMIA [None]
  - LOSS OF CONSCIOUSNESS [None]
  - PLATELET COUNT DECREASED [None]
